FAERS Safety Report 24643126 (Version 1)
Quarter: 2024Q4

REPORT INFORMATION
  Report Type: Report from Study
  Country: US (occurrence: US)
  Receive Date: 20241120
  Receipt Date: 20241120
  Transmission Date: 20250114
  Serious: Yes (Hospitalization)
  Sender: JAZZ
  Company Number: US-JAZZ PHARMACEUTICALS-2023-US-002787

PATIENT
  Age: 24 Year
  Sex: Female

DRUGS (6)
  1. XYWAV [Suspect]
     Active Substance: CALCIUM OXYBATE\MAGNESIUM OXYBATE\POTASSIUM OXYBATE\SODIUM OXYBATE
     Indication: Narcolepsy
     Dosage: 4.25 GRAM, QD
  2. XYWAV [Suspect]
     Active Substance: CALCIUM OXYBATE\MAGNESIUM OXYBATE\POTASSIUM OXYBATE\SODIUM OXYBATE
     Indication: Cataplexy
     Dosage: 6 GRAM, QD
  3. XYWAV [Suspect]
     Active Substance: CALCIUM OXYBATE\MAGNESIUM OXYBATE\POTASSIUM OXYBATE\SODIUM OXYBATE
     Indication: Somnolence
     Dosage: 6 GRAM AND 3 GRAM
  4. RISPERIDONE [Concomitant]
     Active Substance: RISPERIDONE
     Dosage: UNK
     Dates: start: 20211101
  5. TRI-SPRINTEC [Concomitant]
     Active Substance: ETHINYL ESTRADIOL\NORGESTIMATE
     Dosage: UNK
     Dates: start: 20170101
  6. WAKIX [Concomitant]
     Active Substance: PITOLISANT HYDROCHLORIDE
     Dosage: UNK
     Dates: start: 20221127

REACTIONS (6)
  - Mental disorder [Unknown]
  - Self-injurious ideation [Recovered/Resolved]
  - Vomiting [Unknown]
  - Anxiety [Unknown]
  - Off label use [Unknown]
  - Product administration interrupted [Unknown]

NARRATIVE: CASE EVENT DATE: 20230801
